FAERS Safety Report 15251184 (Version 5)
Quarter: 2019Q2

REPORT INFORMATION
  Report Type: Spontaneous
  Country: BE (occurrence: BE)
  Receive Date: 20180807
  Receipt Date: 20190510
  Transmission Date: 20190711
  Serious: Yes (Hospitalization, Other)
  Sender: FDA-Public Use
  Company Number: BE-SA-2018SA145313

PATIENT
  Age: 41 Year
  Sex: Female

DRUGS (8)
  1. L-THYROXINE [LEVOTHYROXINE] [Concomitant]
     Active Substance: LEVOTHYROXINE
     Dosage: 125 UG, UNK
     Route: 065
  2. LEMTRADA [Suspect]
     Active Substance: ALEMTUZUMAB
     Dosage: UNK
     Route: 065
     Dates: start: 20151214, end: 20151219
  3. LEMTRADA [Suspect]
     Active Substance: ALEMTUZUMAB
     Dosage: UNK
     Route: 041
     Dates: start: 20161214, end: 20161217
  4. TRAZODONE [Concomitant]
     Active Substance: TRAZODONE HYDROCHLORIDE
     Dosage: 100 MG, UNK
     Route: 065
  5. MESTINON [Concomitant]
     Active Substance: PYRIDOSTIGMINE BROMIDE
     Dosage: 10 MG, UNK
     Route: 065
  6. LEMTRADA [Suspect]
     Active Substance: ALEMTUZUMAB
     Indication: MULTIPLE SCLEROSIS
     Dosage: UNK
     Route: 041
     Dates: start: 20171218, end: 20171220
  7. TAMSULOSIN [Concomitant]
     Active Substance: TAMSULOSIN
     Dosage: 0.4 MG, UNK
     Route: 065
  8. FAMPYRA [Concomitant]
     Active Substance: DALFAMPRIDINE
     Dosage: 10 MG
     Route: 065

REACTIONS (48)
  - Paresis [Unknown]
  - Urosepsis [Unknown]
  - Nausea [Recovered/Resolved]
  - Vomiting [Recovered/Resolved]
  - Urinary tract disorder [Unknown]
  - Hyperhidrosis [Unknown]
  - Extrapyramidal disorder [Unknown]
  - Obesity [Unknown]
  - Muscular weakness [Unknown]
  - White blood cell count increased [Unknown]
  - Gamma-glutamyltransferase increased [Unknown]
  - Decreased appetite [Unknown]
  - Lip swelling [Unknown]
  - Guillain-Barre syndrome [Unknown]
  - Multiple sclerosis relapse [Unknown]
  - Hyperreflexia [Unknown]
  - Condition aggravated [Unknown]
  - Gastrointestinal disorder [Unknown]
  - Muscle spasticity [Unknown]
  - Asthenia [Unknown]
  - Extensor plantar response [Unknown]
  - Epigastric discomfort [Unknown]
  - Platelet count increased [Unknown]
  - Protein total increased [Unknown]
  - Blood potassium decreased [Unknown]
  - Respiratory failure [Unknown]
  - Muscle spasms [Unknown]
  - Campylobacter infection [Unknown]
  - Diarrhoea [Unknown]
  - Dysphagia [Unknown]
  - Paraesthesia [Unknown]
  - Hypoaesthesia [Unknown]
  - Walking aid user [Unknown]
  - Menstrual disorder [Unknown]
  - C-reactive protein increased [Unknown]
  - Dysuria [Unknown]
  - Thyroxine free increased [Unknown]
  - Upper respiratory tract infection [Unknown]
  - Burning sensation [Unknown]
  - Blood creatinine decreased [Unknown]
  - Diplopia [Unknown]
  - Fatigue [Unknown]
  - Bronchitis [Unknown]
  - Urinary retention [Unknown]
  - Pain in extremity [Unknown]
  - Hiccups [Unknown]
  - Bacterial test [Unknown]
  - Blood thyroid stimulating hormone increased [Unknown]

NARRATIVE: CASE EVENT DATE: 20170621
